FAERS Safety Report 7023505-6 (Version None)
Quarter: 2010Q3

REPORT INFORMATION
  Report Type: 
  Country: None (occurrence: None)
  Receive Date: 20100929
  Receipt Date: 20100929
  Transmission Date: 20110219
  Serious: Yes (Other)
  Sender: FDA-Public Use
  Company Number: None

PATIENT
  Age: 64 Year
  Sex: Female
  Weight: 61.2356 kg

DRUGS (1)
  1. NUCYNTA [Suspect]
     Indication: PROCEDURAL PAIN
     Dosage: 75 MG SIX HOURS PO
     Route: 048
     Dates: start: 20100927, end: 20100927

REACTIONS (3)
  - DYSPNOEA [None]
  - NAUSEA [None]
  - SOMNOLENCE [None]
